FAERS Safety Report 8917691 (Version 2)
Quarter: 2013Q2

REPORT INFORMATION
  Report Type: Spontaneous
  Country: US (occurrence: US)
  Receive Date: 20121119
  Receipt Date: 20130513
  Transmission Date: 20140414
  Serious: No
  Sender: FDA-Public Use
  Company Number: US-009507513-1211USA003964

PATIENT
  Age: 73 Year
  Sex: Female
  Weight: 40.82 kg

DRUGS (3)
  1. CLARITIN-D-12 [Suspect]
     Indication: PRODUCT USED FOR UNKNOWN INDICATION
     Dosage: 5 MG, ONCE
     Route: 048
     Dates: start: 20120912
  2. CLARITIN-D-12 [Suspect]
     Indication: MEDICAL OBSERVATION
  3. SINGULAIR [Concomitant]
     Indication: ASTHMA
     Dosage: UNK, UNKNOWN

REACTIONS (2)
  - Insomnia [Unknown]
  - Feeling abnormal [Unknown]
